FAERS Safety Report 23333258 (Version 1)
Quarter: 2023Q4

REPORT INFORMATION
  Report Type: Spontaneous
  Country: CO (occurrence: CO)
  Receive Date: 20231222
  Receipt Date: 20231222
  Transmission Date: 20240109
  Serious: Yes (Other)
  Sender: FDA-Public Use
  Company Number: CO-SA-SAC20230921000261

PATIENT
  Age: 34 Year
  Sex: Male

DRUGS (8)
  1. CLOBAZAM [Suspect]
     Active Substance: CLOBAZAM
     Indication: Epilepsy
     Dosage: 12 DF, QD
     Route: 048
     Dates: end: 2023
  2. CLOBAZAM [Suspect]
     Active Substance: CLOBAZAM
     Dosage: 12 DF, QD
     Route: 048
     Dates: start: 202309
  3. CLOBAZAM [Suspect]
     Active Substance: CLOBAZAM
     Indication: Epilepsy
     Dosage: 12 DF, QD
     Route: 048
     Dates: start: 202307, end: 2023
  4. RISPERIDONE [Concomitant]
     Active Substance: RISPERIDONE
     Indication: Product used for unknown indication
     Dosage: UNK
     Route: 065
  5. DULCOLAX (BISACODYL) [Concomitant]
     Active Substance: BISACODYL
     Indication: Constipation
     Dosage: UNK
     Route: 065
  6. DICLOFENAC [Concomitant]
     Active Substance: DICLOFENAC
     Indication: Pain in extremity
     Dosage: UNK
     Route: 065
  7. DICLOFENAC [Concomitant]
     Active Substance: DICLOFENAC
     Indication: Neck pain
  8. DICLOFENAC [Concomitant]
     Active Substance: DICLOFENAC
     Indication: Back pain

REACTIONS (5)
  - Epilepsy [Recovering/Resolving]
  - General physical health deterioration [Recovering/Resolving]
  - Hypersomnia [Recovering/Resolving]
  - Depression [Recovering/Resolving]
  - Decreased appetite [Recovering/Resolving]

NARRATIVE: CASE EVENT DATE: 20230701
